FAERS Safety Report 17600048 (Version 1)
Quarter: 2020Q1

REPORT INFORMATION
  Report Type: Report from Study
  Country: CO (occurrence: CO)
  Receive Date: 20200330
  Receipt Date: 20200330
  Transmission Date: 20200409
  Serious: Yes (Hospitalization)
  Sender: FDA-Public Use
  Company Number: CO-ROCHE-2523253

PATIENT
  Sex: Male

DRUGS (1)
  1. AVASTIN [Suspect]
     Active Substance: BEVACIZUMAB
     Indication: RECTAL CANCER
     Route: 042

REACTIONS (6)
  - Metastases to lung [Unknown]
  - Drug ineffective [Unknown]
  - Pulmonary mass [Unknown]
  - Renal disorder [Unknown]
  - Metastases to kidney [Unknown]
  - Urethral obstruction [Unknown]
